FAERS Safety Report 12308865 (Version 1)
Quarter: 2016Q2

REPORT INFORMATION
  Report Type: Spontaneous
  Country: US (occurrence: None)
  Receive Date: 20160426
  Receipt Date: 20160426
  Transmission Date: 20160815
  Serious: Yes (Life-Threatening, Hospitalization)
  Sender: FDA-Public Use
  Company Number: None

PATIENT
  Age: 75 Year
  Sex: Female
  Weight: 61.69 kg

DRUGS (8)
  1. DILTIAZEM [Concomitant]
     Active Substance: DILTIAZEM
  2. TUMERIC [Concomitant]
     Active Substance: TURMERIC
  3. PROAIR HFA [Concomitant]
     Active Substance: ALBUTEROL SULFATE
  4. MONTALUKAST [Concomitant]
  5. EPIPEN [Concomitant]
     Active Substance: EPINEPHRINE
  6. SPIRIVA [Suspect]
     Active Substance: TIOTROPIUM BROMIDE MONOHYDRATE
     Indication: CHRONIC OBSTRUCTIVE PULMONARY DISEASE
     Route: 055
     Dates: start: 20060725, end: 20160330
  7. RAMIPRIL. [Concomitant]
     Active Substance: RAMIPRIL
  8. SYMBICORT [Concomitant]
     Active Substance: BUDESONIDE\FORMOTEROL FUMARATE DIHYDRATE

REACTIONS (21)
  - Abdominal distension [None]
  - Gastritis [None]
  - Chills [None]
  - Bronchitis [None]
  - Nausea [None]
  - Pneumonia [None]
  - Dizziness [None]
  - Dyspepsia [None]
  - Abdominal pain upper [None]
  - Abdominal discomfort [None]
  - Blood count abnormal [None]
  - Muscle spasms [None]
  - Confusional state [None]
  - Hypotension [None]
  - Weight decreased [None]
  - Pyrexia [None]
  - Gait disturbance [None]
  - Epigastric discomfort [None]
  - Asthenia [None]
  - Dyspnoea [None]
  - General physical health deterioration [None]

NARRATIVE: CASE EVENT DATE: 20160212
